FAERS Safety Report 5041078-4 (Version None)
Quarter: 2006Q2

REPORT INFORMATION
  Report Type: 
  Country: None (occurrence: None)
  Receive Date: 20060601
  Receipt Date: 20060327
  Transmission Date: 20061013
  Serious: No
  Sender: FDA-Public Use
  Company Number: 2006PV011006

PATIENT
  Age: 64 Year
  Sex: Female
  Weight: 113.3993 kg

DRUGS (2)
  1. BYETTA [Suspect]
     Indication: DIABETES MELLITUS NON-INSULIN-DEPENDENT
     Dosage: 10MCG;BID;SC, 5 MCG;BID;SC
     Route: 058
     Dates: start: 20060130, end: 20060305
  2. BYETTA [Suspect]
     Indication: DIABETES MELLITUS NON-INSULIN-DEPENDENT
     Dosage: 10MCG;BID;SC, 5 MCG;BID;SC
     Route: 058
     Dates: start: 20060306

REACTIONS (3)
  - DECREASED APPETITE [None]
  - DRUG INEFFECTIVE FOR UNAPPROVED INDICATION [None]
  - WEIGHT DECREASED [None]
